FAERS Safety Report 7716167-3 (Version None)
Quarter: 2011Q3

REPORT INFORMATION
  Report Type: 
  Country: None (occurrence: None)
  Receive Date: 20110829
  Receipt Date: 20110817
  Transmission Date: 20111222
  Serious: Yes (Other)
  Sender: FDA-Public Use
  Company Number: DE-ELI_LILLY_AND_COMPANY-DE201108005593

PATIENT
  Sex: Female

DRUGS (10)
  1. TORSEMIDE [Concomitant]
  2. VALORON [Concomitant]
  3. ASPIRIN [Concomitant]
  4. INSULIN [Concomitant]
  5. CYMBALTA [Suspect]
     Dosage: UNK, UNKNOWN
     Route: 048
  6. FOLSAN [Concomitant]
  7. GABAPENTIN [Concomitant]
  8. ALLOPURINOL [Concomitant]
  9. PREDNISONE [Concomitant]
  10. MIRTAZAPINE [Concomitant]

REACTIONS (1)
  - ELECTROCARDIOGRAM QT PROLONGED [None]
